FAERS Safety Report 22333661 (Version 1)
Quarter: 2023Q2

REPORT INFORMATION
  Report Type: Spontaneous
  Country: FR (occurrence: None)
  Receive Date: 20230517
  Receipt Date: 20230517
  Transmission Date: 20230721
  Serious: Yes (Death, Other)
  Sender: FDA-Public Use
  Company Number: 2023A114381

PATIENT
  Age: 50 Year
  Sex: Female

DRUGS (7)
  1. QUETIAPINE [Suspect]
     Active Substance: QUETIAPINE
     Indication: Mental disorder
     Route: 048
  2. QUETIAPINE [Suspect]
     Active Substance: QUETIAPINE
     Indication: Bipolar disorder
     Route: 048
  3. QUETIAPINE [Suspect]
     Active Substance: QUETIAPINE
     Indication: Schizophrenia
     Route: 048
  4. ARIPIPRAZOLE [Suspect]
     Active Substance: ARIPIPRAZOLE
     Indication: Schizophrenia
  5. ARIPIPRAZOLE [Suspect]
     Active Substance: ARIPIPRAZOLE
     Indication: Bipolar disorder
  6. HALOPERIDOL [Suspect]
     Active Substance: HALOPERIDOL
     Indication: Psychomotor hyperactivity
  7. VALPROMIDE [Suspect]
     Active Substance: VALPROMIDE
     Indication: Bipolar disorder

REACTIONS (1)
  - Poisoning [Fatal]
